FAERS Safety Report 10287389 (Version 2)
Quarter: 2014Q3

REPORT INFORMATION
  Report Type: Spontaneous
  Country: US (occurrence: None)
  Receive Date: 20140707
  Receipt Date: 20140714
  Transmission Date: 20150326
  Serious: Yes (Other)
  Sender: FDA-Public Use
  Company Number: 2014-US-008184

PATIENT
  Age: 32 Year
  Sex: Male

DRUGS (1)
  1. XYREM [Suspect]
     Active Substance: SODIUM OXYBATE
     Indication: NARCOLEPSY
     Route: 048
     Dates: start: 201308

REACTIONS (17)
  - Muscle atrophy [None]
  - Depression [None]
  - Dyspepsia [None]
  - Libido decreased [None]
  - Dry mouth [None]
  - Dyspnoea [None]
  - Erectile dysfunction [None]
  - Activities of daily living impaired [None]
  - Blood testosterone abnormal [None]
  - Arthralgia [None]
  - Suicidal ideation [None]
  - Joint swelling [None]
  - Muscular weakness [None]
  - Dysphagia [None]
  - Sweat gland disorder [None]
  - Anxiety [None]
  - Confusional state [None]

NARRATIVE: CASE EVENT DATE: 201308
